FAERS Safety Report 7634918-3 (Version None)
Quarter: 2011Q3

REPORT INFORMATION
  Report Type: 
  Country: None (occurrence: None)
  Receive Date: 20110726
  Receipt Date: 20100308
  Transmission Date: 20111222
  Serious: No
  Sender: FDA-Public Use
  Company Number: US-BAYER-201016709NA

PATIENT
  Sex: Female

DRUGS (1)
  1. MIRENA [Suspect]
     Dosage: 20 MCG/24HR, CONT
     Route: 015

REACTIONS (8)
  - MEDICAL DEVICE COMPLICATION [None]
  - ABDOMINAL DISTENSION [None]
  - ABDOMINAL DISCOMFORT [None]
  - BREAST TENDERNESS [None]
  - MENSTRUATION IRREGULAR [None]
  - INCREASED APPETITE [None]
  - POLYURIA [None]
  - DYSPEPSIA [None]
